FAERS Safety Report 7693623-8 (Version None)
Quarter: 2011Q3

REPORT INFORMATION
  Report Type: 
  Country: None (occurrence: None)
  Receive Date: 20110816
  Receipt Date: 20110803
  Transmission Date: 20111222
  Serious: Yes (Other)
  Sender: FDA-Public Use
  Company Number: AUR-APL-2011-04531

PATIENT
  Age: 43 Year
  Sex: Female

DRUGS (9)
  1. KLIOFEM (KLIOGEST /0068201/) [Concomitant]
  2. LORATADINE [Concomitant]
  3. MEBEVERINE HYDROCHLORIDE (MEBEVERINE HYDROCHLORIDE) [Concomitant]
  4. CO-CODAMOL (PANADEINE CO) [Concomitant]
  5. LEVOTHYROXINE SODIUM [Concomitant]
  6. PROGUANIL (PROGUANIL) [Concomitant]
  7. METRONIDAZOLE [Concomitant]
  8. SERTRALINE HYDROCHLORIDE [Suspect]
     Indication: PRODUCT USED FOR UNKNOWN INDICATION
     Dates: start: 20110712
  9. HYOSCINE HBR HYT [Concomitant]

REACTIONS (3)
  - LETHARGY [None]
  - FATIGUE [None]
  - HYPERSOMNIA [None]
